FAERS Safety Report 9570869 (Version 1)
Quarter: 2013Q1

REPORT INFORMATION
  Report Type: Spontaneous
  Country: US (occurrence: None)
  Receive Date: 20120924
  Receipt Date: 20120924
  Transmission Date: 20140127
  Serious: Yes (Hospitalization)
  Sender: FDA-Public Use
  Company Number: 2012ST000443

PATIENT
  Sex: Male

DRUGS (1)
  1. MATULANE CAPSULES [Suspect]
     Indication: HODGKIN^S DISEASE
     Dosage: 100 MG; BID; PO
     Route: 048
     Dates: start: 20120418

REACTIONS (1)
  - Pneumonia [None]
